FAERS Safety Report 12837776 (Version 1)
Quarter: 2016Q4

REPORT INFORMATION
  Report Type: Report from Study
  Country: US (occurrence: US)
  Receive Date: 20161012
  Receipt Date: 20161012
  Transmission Date: 20170207
  Serious: Yes (Hospitalization, Other)
  Sender: FDA-Public Use
  Company Number: US-AMGEN-USASL2016136272

PATIENT
  Age: 61 Year
  Sex: Female

DRUGS (1)
  1. PROLIA [Suspect]
     Active Substance: DENOSUMAB
     Indication: PRODUCT USED FOR UNKNOWN INDICATION
     Dosage: UNK
     Route: 065
     Dates: start: 201509

REACTIONS (34)
  - Rash erythematous [Unknown]
  - Arthropathy [Unknown]
  - General physical health deterioration [Unknown]
  - Contusion [Unknown]
  - Walking aid user [Unknown]
  - Pain in jaw [Recovering/Resolving]
  - Pain [Recovered/Resolved]
  - Cementoplasty [Unknown]
  - Urinary tract infection [Unknown]
  - Musculoskeletal disorder [Unknown]
  - Blister [Unknown]
  - Mobility decreased [Unknown]
  - Skin exfoliation [Unknown]
  - Dry skin [Unknown]
  - Eyelid margin crusting [Unknown]
  - Burning sensation [Unknown]
  - Back pain [Recovering/Resolving]
  - Pruritus [Unknown]
  - Meningitis [Unknown]
  - Ear pain [Recovering/Resolving]
  - Bone atrophy [Unknown]
  - Discomfort [Unknown]
  - Fall [Unknown]
  - Skin discolouration [Unknown]
  - Arthralgia [Recovering/Resolving]
  - Bone pain [Recovering/Resolving]
  - Migraine [Unknown]
  - Cardiac disorder [Unknown]
  - Eye disorder [Unknown]
  - Immune system disorder [Unknown]
  - Breast enlargement [Unknown]
  - Insomnia [Unknown]
  - Pain in extremity [Unknown]
  - Gait disturbance [Unknown]

NARRATIVE: CASE EVENT DATE: 201609
